FAERS Safety Report 12976330 (Version 2)
Quarter: 2016Q4

REPORT INFORMATION
  Report Type: Report from Study
  Country: CN (occurrence: CN)
  Receive Date: 20161126
  Receipt Date: 20161128
  Transmission Date: 20170207
  Serious: Yes (Other)
  Sender: FDA-Public Use
  Company Number: PHHY2016CN159127

PATIENT
  Age: 61 Year
  Sex: Male

DRUGS (58)
  1. BASILIXIMAB [Suspect]
     Active Substance: BASILIXIMAB
     Indication: PRODUCT USED FOR UNKNOWN INDICATION
     Dosage: 20 MG, QD
     Route: 065
     Dates: start: 20160812, end: 20160812
  2. FUROSEMIDE. [Concomitant]
     Active Substance: FUROSEMIDE
     Indication: POLYURIA
     Dosage: 20 MG, QD
     Route: 048
     Dates: start: 20160821
  3. PROMETHAZINE [Concomitant]
     Active Substance: PROMETHAZINE\PROMETHAZINE HYDROCHLORIDE
     Indication: SEDATION
     Dosage: 2 DF, TID
     Route: 048
     Dates: start: 20160813, end: 20160821
  4. MYFORTIC [Suspect]
     Active Substance: MYCOPHENOLATE SODIUM
     Dosage: 1440 MG, QD
     Route: 065
     Dates: start: 20160821
  5. FUROSEMIDE. [Concomitant]
     Active Substance: FUROSEMIDE
     Dosage: 40 MG, QD
     Route: 042
     Dates: start: 20160817, end: 20160821
  6. ALPROSTADIL. [Concomitant]
     Active Substance: ALPROSTADIL
     Indication: CARDIOVASCULAR DISORDER
     Dosage: 20 UG, QD
     Route: 042
     Dates: start: 20160813, end: 20160821
  7. INSULIN ASPART [Concomitant]
     Active Substance: INSULIN ASPART
     Dosage: 16 IU, TID
     Route: 061
     Dates: start: 20160818, end: 20160818
  8. POTASSIUM SODIUM HYDROGEN CITRATE [Concomitant]
     Dosage: 2500 MG, TID
     Route: 048
     Dates: start: 20160821
  9. CICLOSPORIN [Suspect]
     Active Substance: CYCLOSPORINE
     Indication: PRODUCT USED FOR UNKNOWN INDICATION
     Dosage: 300 MG, QD
     Route: 065
     Dates: start: 20160813, end: 20160816
  10. METHYLPREDNISOLONE. [Suspect]
     Active Substance: METHYLPREDNISOLONE
     Dosage: 700 MG, QD
     Route: 065
     Dates: start: 20160813, end: 20160814
  11. METHYLPREDNISOLONE. [Suspect]
     Active Substance: METHYLPREDNISOLONE
     Dosage: 20 MG, QD
     Route: 065
     Dates: start: 20160816, end: 20160819
  12. AMIKACIN [Concomitant]
     Active Substance: AMIKACIN
     Indication: PROPHYLAXIS
     Dosage: 400 MG, PRN
     Route: 042
     Dates: start: 20160812, end: 20160812
  13. DIAZEPAM. [Concomitant]
     Active Substance: DIAZEPAM
     Indication: SEDATION
     Dosage: 5 MG, PRN
     Route: 048
     Dates: start: 20160812, end: 20160812
  14. MANNITOL. [Concomitant]
     Active Substance: MANNITOL
     Indication: PROPHYLAXIS
     Dosage: 125 ML, PRN
     Route: 042
     Dates: start: 20160812, end: 20160812
  15. MAGNESIUM SULFATE. [Concomitant]
     Active Substance: MAGNESIUM SULFATE
     Indication: ELECTROLYTE SUBSTITUTION THERAPY
     Dosage: 3.2 ML, PRN
     Route: 042
     Dates: start: 20160812, end: 20160812
  16. LOSEC [Concomitant]
     Active Substance: OMEPRAZOLE
     Indication: PROPHYLAXIS
     Dosage: 40 MG, QD
     Route: 042
     Dates: start: 20160813, end: 20160821
  17. FUROSEMIDE. [Concomitant]
     Active Substance: FUROSEMIDE
     Dosage: 20 MG, PRN
     Route: 042
     Dates: start: 20160813, end: 20160813
  18. INSULIN ASPART [Concomitant]
     Active Substance: INSULIN ASPART
     Dosage: 10 IU, TID
     Route: 061
     Dates: start: 20160821
  19. CALCITRIOL. [Concomitant]
     Active Substance: CALCITRIOL
     Indication: PROPHYLAXIS
     Dosage: 0.25 UG, QD
     Route: 048
     Dates: start: 20160816, end: 20160821
  20. SULFAMETHOXAZOLE [Concomitant]
     Active Substance: SULFAMETHOXAZOLE
     Indication: INFECTION
     Dosage: 240 MG, BID
     Route: 048
     Dates: start: 20160820, end: 20160821
  21. CICLOSPORIN [Suspect]
     Active Substance: CYCLOSPORINE
     Dosage: 350 MG, QD
     Route: 065
     Dates: start: 20160817, end: 20160818
  22. CICLOSPORIN [Suspect]
     Active Substance: CYCLOSPORINE
     Dosage: 300 MG, QD
     Route: 065
     Dates: start: 20160819
  23. MAGNESIUM SULFATE. [Concomitant]
     Active Substance: MAGNESIUM SULFATE
     Dosage: 1.6 ML, PRN
     Route: 042
     Dates: start: 20160813, end: 20160813
  24. SODIUM BICARBONATE. [Concomitant]
     Active Substance: SODIUM BICARBONATE
     Indication: URINE ABNORMALITY
     Dosage: 1000 MG, BID
     Route: 048
     Dates: start: 20160820
  25. DILTIAZEM HYDROCHLORIDE. [Concomitant]
     Active Substance: DILTIAZEM HYDROCHLORIDE
     Indication: PRODUCT USED FOR UNKNOWN INDICATION
     Dosage: 30 MG, BID
     Route: 048
     Dates: start: 20160813
  26. TORASEMIDE [Concomitant]
     Active Substance: TORSEMIDE
     Indication: POLYURIA
     Dosage: 20 MG, PRN
     Route: 042
     Dates: start: 20160814, end: 20160814
  27. NIFEDIPINE. [Concomitant]
     Active Substance: NIFEDIPINE
     Indication: HYPERTENSION
     Dosage: 10 MG, QD
     Route: 048
     Dates: start: 20160816, end: 20160817
  28. POTASSIUM SODIUM HYDROGEN CITRATE [Concomitant]
     Indication: PROPHYLAXIS
     Dosage: 97.1 G, PRN
     Route: 048
     Dates: start: 20160818, end: 20160818
  29. POTASSIUM SODIUM HYDROGEN CITRATE [Concomitant]
     Dosage: 5000 MG, TID
     Route: 048
     Dates: start: 20160818, end: 20160821
  30. MYFORTIC [Suspect]
     Active Substance: MYCOPHENOLATE SODIUM
     Dosage: 2160 MG, QD
     Route: 065
     Dates: start: 20160813, end: 20160820
  31. BASILIXIMAB [Suspect]
     Active Substance: BASILIXIMAB
     Dosage: 20 MG, QD
     Route: 065
     Dates: start: 20160816, end: 20160816
  32. SODIUM PHOSPHATE [Concomitant]
     Active Substance: SODIUM PHOSPHATE
     Indication: GASTRIC DISORDER
     Dosage: 133 ML, PRN
     Route: 054
     Dates: start: 20160812, end: 20160812
  33. SODIUM BICARBONATE. [Concomitant]
     Active Substance: SODIUM BICARBONATE
     Indication: ELECTROLYTE IMBALANCE
     Dosage: 250 ML, PRN
     Route: 042
     Dates: start: 20160812, end: 20160812
  34. FUROSEMIDE. [Concomitant]
     Active Substance: FUROSEMIDE
     Indication: POLYURIA
     Dosage: 80 MG, PRN
     Route: 042
     Dates: start: 20160812, end: 20160812
  35. GLUCOSE [Concomitant]
     Active Substance: DEXTROSE
     Indication: FLUID IMBALANCE
     Dosage: 500 ML, PRN
     Route: 042
     Dates: start: 20160813, end: 20160813
  36. INSULIN ASPART [Concomitant]
     Active Substance: INSULIN ASPART
     Dosage: 24 IU, QD
     Route: 061
     Dates: start: 20160819, end: 20160821
  37. ALFACALCIDOL [Concomitant]
     Active Substance: ALFACALCIDOL
     Indication: BONE DISORDER
     Dosage: 0.25 UG, QD
     Route: 048
     Dates: start: 20160821
  38. METHYLPREDNISOLONE. [Suspect]
     Active Substance: METHYLPREDNISOLONE
     Indication: PRODUCT USED FOR UNKNOWN INDICATION
     Dosage: 860 MG, QD
     Route: 065
     Dates: start: 20160812, end: 20160812
  39. DEXAMETHASONE. [Concomitant]
     Active Substance: DEXAMETHASONE
     Indication: PROPHYLAXIS
     Dosage: 10 MG, PRN
     Route: 030
     Dates: start: 20160812, end: 20160812
  40. CASPOFUNGIN ACETATE [Concomitant]
     Active Substance: CASPOFUNGIN ACETATE
     Indication: INFECTION
     Dosage: 50 MG, QD
     Route: 042
     Dates: start: 20160812, end: 20160821
  41. IMIPENEM AND CILASTATIN [Concomitant]
     Active Substance: CILASTATIN SODIUM\IMIPENEM
     Indication: INFECTION
     Dosage: 500 MG, QD
     Route: 042
     Dates: start: 20160812, end: 20160820
  42. TEICOPLANIN [Concomitant]
     Active Substance: TEICOPLANIN
     Indication: INFECTION
     Dosage: 200 MG, QD
     Route: 042
     Dates: start: 20160813, end: 20160820
  43. INSULIN GLARGINE [Concomitant]
     Active Substance: INSULIN GLARGINE
     Dosage: 14 IU, QD
     Route: 061
     Dates: start: 20160817, end: 20160819
  44. INSULIN ASPART [Concomitant]
     Active Substance: INSULIN ASPART
     Indication: BLOOD GLUCOSE ABNORMAL
     Dosage: 4 IU, TID
     Route: 061
     Dates: start: 20160815, end: 20160816
  45. INSULIN ASPART [Concomitant]
     Active Substance: INSULIN ASPART
     Dosage: 6 IU, TID
     Route: 061
     Dates: start: 20160816, end: 20160817
  46. CALCIUM CARBONATE. [Concomitant]
     Active Substance: CALCIUM CARBONATE
     Indication: MINERAL SUPPLEMENTATION
     Dosage: 600 MG, TID
     Route: 048
     Dates: start: 20160819
  47. MYFORTIC [Suspect]
     Active Substance: MYCOPHENOLATE SODIUM
     Indication: RENAL TRANSPLANT
     Dosage: 1440 MG, QD
     Route: 065
     Dates: start: 20160812, end: 20160812
  48. HEPATITIS B IMMUNE GLOBULIN [Concomitant]
     Active Substance: HUMAN HEPATITIS B VIRUS IMMUNE GLOBULIN
     Indication: ANTIVIRAL PROPHYLAXIS
     Dosage: 400 IU, PRN
     Route: 030
     Dates: start: 20160813, end: 20160813
  49. INSULIN GLARGINE [Concomitant]
     Active Substance: INSULIN GLARGINE
     Dosage: 10 IU, QD
     Route: 061
     Dates: start: 20160816, end: 20160817
  50. INSULIN GLARGINE [Concomitant]
     Active Substance: INSULIN GLARGINE
     Dosage: 16 IU, QD
     Route: 061
     Dates: start: 20160819
  51. METHYLPREDNISOLONE. [Suspect]
     Active Substance: METHYLPREDNISOLONE
     Dosage: 360 MG, QD
     Route: 065
     Dates: start: 20160815, end: 20160815
  52. PREDNISONE. [Suspect]
     Active Substance: PREDNISONE
     Indication: PRODUCT USED FOR UNKNOWN INDICATION
     Dosage: 15 MG, QD
     Route: 065
     Dates: start: 20160819
  53. TALCID [Concomitant]
     Active Substance: HYDROTALCITE
     Indication: PROPHYLAXIS
     Dosage: 1000 MG, QD
     Route: 048
     Dates: start: 20160813
  54. ALPRAZOLAM. [Concomitant]
     Active Substance: ALPRAZOLAM
     Indication: SEDATION
     Dosage: 0.4 MG, QD
     Route: 048
     Dates: start: 20160813, end: 20160821
  55. CALCIUM GLUCONATE. [Concomitant]
     Active Substance: CALCIUM GLUCONATE
     Indication: PROPHYLAXIS
     Dosage: 3000 MG, QD
     Route: 042
     Dates: start: 20160813, end: 20160814
  56. HEPARIN SODIUM. [Concomitant]
     Active Substance: HEPARIN SODIUM
     Indication: PROPHYLAXIS
     Dosage: 12500 IU, B1W1
     Route: 065
     Dates: start: 20160814, end: 20160821
  57. INSULIN GLARGINE [Concomitant]
     Active Substance: INSULIN GLARGINE
     Indication: BLOOD GLUCOSE ABNORMAL
     Dosage: 4 IU, QD
     Route: 061
     Dates: start: 20160815, end: 20160816
  58. VITAMIN B6 [Concomitant]
     Active Substance: PYRIDOXINE HYDROCHLORIDE
     Indication: ANAEMIA
     Dosage: 60 MG, TID
     Route: 048
     Dates: start: 20160818

REACTIONS (11)
  - Lymphocyte count decreased [Unknown]
  - Low density lipoprotein increased [Unknown]
  - Blood urea increased [Unknown]
  - Protein urine present [Unknown]
  - Red blood cells urine positive [Unknown]
  - C-reactive protein increased [Unknown]
  - Haemoglobin decreased [Unknown]
  - White blood cell count increased [Unknown]
  - Blood triglycerides increased [Unknown]
  - Neutrophil count increased [Unknown]
  - Incision site pain [Recovering/Resolving]

NARRATIVE: CASE EVENT DATE: 20160813
